FAERS Safety Report 6446186-9 (Version None)
Quarter: 2009Q4

REPORT INFORMATION
  Report Type: 
  Country: None (occurrence: None)
  Receive Date: 20091119
  Receipt Date: 20091107
  Transmission Date: 20100525
  Serious: Yes (Hospitalization)
  Sender: FDA-Public Use
  Company Number: RU-JNJFOC-20091102962

PATIENT
  Age: 26 Year
  Sex: Male

DRUGS (9)
  1. PALIPERIDONE [Suspect]
     Route: 048
  2. PALIPERIDONE [Suspect]
     Indication: SCHIZOPHRENIA
     Route: 048
  3. PALIPERIDONE PALMITATE [Suspect]
     Route: 030
  4. PALIPERIDONE PALMITATE [Suspect]
     Indication: SCHIZOPHRENIA
     Route: 030
  5. RISPERIDONE [Suspect]
  6. RISPERIDONE [Suspect]
  7. RISPERIDONE [Suspect]
     Indication: SCHIZOPHRENIA
  8. HALOPERIDOL [Suspect]
     Indication: SCHIZOPHRENIA
  9. OLANZAPINE [Suspect]
     Indication: SCHIZOPHRENIA

REACTIONS (4)
  - AGITATION [None]
  - COGNITIVE DISORDER [None]
  - DELUSION [None]
  - SCHIZOPHRENIA [None]
